FAERS Safety Report 9659858 (Version 4)
Quarter: 2014Q1

REPORT INFORMATION
  Report Type: Report from Study
  Country: IE (occurrence: IE)
  Receive Date: 20131031
  Receipt Date: 20140128
  Transmission Date: 20141002
  Serious: Yes (Other)
  Sender: FDA-Public Use
  Company Number: IE-US-EMD SERONO, INC.-7246813

PATIENT
  Age: 16 Year
  Sex: Female

DRUGS (7)
  1. SAIZEN [Suspect]
     Indication: TURNER^S SYNDROME
     Route: 058
     Dates: start: 20110210
  2. SAIZEN [Suspect]
     Route: 058
     Dates: start: 20130425
  3. SAIZEN [Suspect]
     Route: 058
     Dates: start: 20131017
  4. SAIZEN [Suspect]
     Route: 058
  5. OESTROGEN [Concomitant]
     Indication: PRODUCT USED FOR UNKNOWN INDICATION
  6. ELTROXIN [Concomitant]
     Indication: PRODUCT USED FOR UNKNOWN INDICATION
  7. ELTROXIN [Concomitant]

REACTIONS (1)
  - Convulsion [Recovered/Resolved]
